FAERS Safety Report 17045113 (Version 2)
Quarter: 2019Q4

REPORT INFORMATION
  Report Type: Spontaneous
  Country: BR (occurrence: BR)
  Receive Date: 20191118
  Receipt Date: 20191227
  Transmission Date: 20200122
  Serious: Yes (Other)
  Sender: FDA-Public Use
  Company Number: NVSC2019BR036731

PATIENT

DRUGS (1)
  1. LECTRUM [Suspect]
     Active Substance: LEUPROLIDE ACETATE
     Indication: PUBERTY
     Dosage: UNK
     Route: 065

REACTIONS (2)
  - Product use in unapproved indication [Unknown]
  - Deafness unilateral [Unknown]
